FAERS Safety Report 8266961-8 (Version None)
Quarter: 2012Q2

REPORT INFORMATION
  Report Type: 
  Country: None (occurrence: None)
  Receive Date: 20120405
  Receipt Date: 20120405
  Transmission Date: 20120825
  Serious: Yes (Other)
  Sender: FDA-Public Use
  Company Number: None

PATIENT
  Sex: Female

DRUGS (1)
  1. SOMATULINE DEPOT [Suspect]
     Dosage: 90MG Q 28 DAYS SQ
     Route: 058
     Dates: start: 20081215, end: 20120403

REACTIONS (2)
  - DIZZINESS [None]
  - ASTHENIA [None]
